FAERS Safety Report 12633189 (Version 2)
Quarter: 2016Q3

REPORT INFORMATION
  Report Type: Spontaneous
  Country: US (occurrence: US)
  Receive Date: 20160808
  Receipt Date: 20160808
  Transmission Date: 20161109
  Serious: No
  Sender: FDA-Public Use
  Company Number: US-BEH-2016058761

PATIENT
  Sex: Female
  Weight: 83 kg

DRUGS (33)
  1. AMITRIPTYLINE HCL [Concomitant]
     Active Substance: AMITRIPTYLINE
  2. ACETAMINOPHEN. [Concomitant]
     Active Substance: ACETAMINOPHEN
  3. TRAZODONE [Concomitant]
     Active Substance: TRAZODONE HYDROCHLORIDE
  4. LYRICA [Concomitant]
     Active Substance: PREGABALIN
  5. CENTURY MULTIVITAMIN TAB [Concomitant]
  6. CRANBERRY. [Concomitant]
     Active Substance: CRANBERRY
  7. CVS OMEPRAZOLE [Concomitant]
  8. MECLIZINE [Concomitant]
     Active Substance: MECLIZINE HYDROCHLORIDE
  9. COUGH SYRUP [Concomitant]
     Active Substance: DEXTROMETHORPHAN HYDROBROMIDE\GUAIFENESIN
     Dosage: 100MG/5ML LIQUID
  10. EPI-PEN AUTOINJECTOR [Concomitant]
  11. ZITHROMAX [Concomitant]
     Active Substance: AZITHROMYCIN DIHYDRATE
     Dosage: Z-PAK
  12. FIRST-TESTOSTERONE MC [Concomitant]
     Dosage: CR
  13. OPANA ER [Concomitant]
     Active Substance: OXYMORPHONE HYDROCHLORIDE
  14. ACYCLOVIR. [Concomitant]
     Active Substance: ACYCLOVIR
  15. DILTIAZEM. [Concomitant]
     Active Substance: DILTIAZEM
  16. BL SELENIUM [Concomitant]
  17. HIZENTRA [Suspect]
     Active Substance: HUMAN IMMUNOGLOBULIN G
     Indication: IMMUNODEFICIENCY COMMON VARIABLE
     Route: 058
     Dates: start: 20110316
  18. MEDROXYPROGESTERONE [Concomitant]
     Active Substance: MEDROXYPROGESTERONE
  19. BENADRYL [Concomitant]
     Active Substance: DIPHENHYDRAMINE HYDROCHLORIDE
  20. BL VITAMIN A [Concomitant]
  21. DIPHENHYDRAMINE. [Concomitant]
     Active Substance: DIPHENHYDRAMINE
  22. GINKOBA [Concomitant]
     Active Substance: GINKGO
  23. CVS IRON [Concomitant]
  24. PREDNISONE. [Concomitant]
     Active Substance: PREDNISONE
  25. SIMVASTATIN. [Concomitant]
     Active Substance: SIMVASTATIN
  26. MAXALT [Concomitant]
     Active Substance: RIZATRIPTAN BENZOATE
  27. ESTROGEN-METHYLTESTOS F.S. TAB [Concomitant]
  28. OXYCODONE HYDROCHLORIDE. [Concomitant]
     Active Substance: OXYCODONE HYDROCHLORIDE
  29. CYANOCOBALAMIN. [Concomitant]
     Active Substance: CYANOCOBALAMIN
     Dosage: 1000 MCG/ML
  30. LIDOCAINE. [Concomitant]
     Active Substance: LIDOCAINE
  31. LEVAQUIN [Concomitant]
     Active Substance: LEVOFLOXACIN
  32. ADULT ASPIRIN [Concomitant]
  33. DETROL LA [Concomitant]
     Active Substance: TOLTERODINE TARTRATE

REACTIONS (1)
  - Bronchitis [Unknown]
